FAERS Safety Report 7248315-6 (Version None)
Quarter: 2011Q1

REPORT INFORMATION
  Report Type: 
  Country: None (occurrence: None)
  Receive Date: 20110127
  Receipt Date: 20110124
  Transmission Date: 20110831
  Serious: Yes (Other)
  Sender: FDA-Public Use
  Company Number: US-PFIZER INC-2011016764

PATIENT
  Sex: Female
  Weight: 73.469 kg

DRUGS (6)
  1. MONTELUKAST SODIUM [Concomitant]
     Indication: LUNG INFECTION
     Dosage: UNK
  2. LESCOL XL [Concomitant]
     Indication: BLOOD CHOLESTEROL INCREASED
     Dosage: 80 MG, 1X/DAY
     Route: 048
  3. CALAN [Concomitant]
     Indication: HEART RATE IRREGULAR
     Dosage: UNK
  4. PREDNISONE [Suspect]
     Indication: INFECTION
     Dosage: UNK
     Route: 048
     Dates: start: 20100301
  5. XANAX [Suspect]
     Indication: ANXIETY
     Dosage: 0.5 MG, 2X/DAY
     Route: 048
  6. NEXIUM [Concomitant]
     Indication: GASTROOESOPHAGEAL REFLUX DISEASE
     Dosage: UNK

REACTIONS (8)
  - INFECTION [None]
  - HEADACHE [None]
  - PILOERECTION [None]
  - FACE OEDEMA [None]
  - FEELING ABNORMAL [None]
  - BRONCHOPNEUMONIA [None]
  - INFLUENZA [None]
  - OEDEMA PERIPHERAL [None]
